FAERS Safety Report 4408189-5 (Version None)
Quarter: 2004Q3

REPORT INFORMATION
  Report Type: 
  Country: None (occurrence: None)
  Receive Date: 20040722
  Receipt Date: 20040709
  Transmission Date: 20050211
  Serious: Yes (Other)
  Sender: FDA-Public Use
  Company Number: 2004047549

PATIENT
  Age: 78 Year
  Sex: Female

DRUGS (8)
  1. ZYRTEC [Suspect]
     Indication: DERMATITIS ALLERGIC
     Dosage: 10 MG, ORAL
     Route: 048
     Dates: start: 20040130, end: 20040206
  2. NIFEDIPINE [Concomitant]
  3. NICORANDIL (NICORANDIL) [Concomitant]
  4. DISOPYRAMIDE [Concomitant]
  5. PRAVASTATIN SODIUM [Concomitant]
  6. TEPRENONE (TEPRENONE) [Concomitant]
  7. PROPIVERINE HYDROCHLORIDE (PROPIVERINE HYDROCHLORIDE) [Concomitant]
  8. ACETYLSALICYLIC ACID SRT [Concomitant]

REACTIONS (8)
  - BLOOD PRESSURE SYSTOLIC INCREASED [None]
  - HAEMATURIA [None]
  - OEDEMA PERIPHERAL [None]
  - PROTEIN URINE PRESENT [None]
  - RED BLOOD CELLS URINE POSITIVE [None]
  - RENAL DISORDER [None]
  - URINARY OCCULT BLOOD POSITIVE [None]
  - WHITE BLOOD CELLS URINE POSITIVE [None]
